FAERS Safety Report 22256438 (Version 1)
Quarter: 2023Q2

REPORT INFORMATION
  Report Type: Spontaneous
  Country: US (occurrence: US)
  Receive Date: 20230426
  Receipt Date: 20230426
  Transmission Date: 20230722
  Serious: Yes (Hospitalization)
  Sender: FDA-Public Use
  Company Number: US-SA-SAC20230425000328

PATIENT
  Sex: Female
  Weight: 63.5 kg

DRUGS (31)
  1. DUPIXENT [Suspect]
     Active Substance: DUPILUMAB
     Indication: Dermatitis atopic
     Dosage: 300 MG, QOW
     Route: 058
     Dates: start: 20190315
  2. ZYRTEC [Concomitant]
     Active Substance: CETIRIZINE HYDROCHLORIDE
  3. ALLEGRA ALLERGY [Concomitant]
     Active Substance: FEXOFENADINE HYDROCHLORIDE
  4. GABAPENTIN [Concomitant]
     Active Substance: GABAPENTIN
  5. MUCINEX [Concomitant]
     Active Substance: GUAIFENESIN
  6. PRISTIQ EXTENDED-RELEASE [Concomitant]
     Active Substance: DESVENLAFAXINE SUCCINATE
  7. ADDERALL [Concomitant]
     Active Substance: AMPHETAMINE ASPARTATE\AMPHETAMINE SULFATE\DEXTROAMPHETAMINE SACCHARATE\DEXTROAMPHETAMINE SULFATE
  8. CHLORTHALIDONE [Concomitant]
     Active Substance: CHLORTHALIDONE
  9. PROTOPIC [Concomitant]
     Active Substance: TACROLIMUS
  10. TRIAMCINOLONE ACETONIDE [Concomitant]
     Active Substance: TRIAMCINOLONE ACETONIDE
  11. ALBUTEROL SULFATE [Concomitant]
     Active Substance: ALBUTEROL SULFATE
  12. DESVENLAFAXINE SUCCINATE [Concomitant]
     Active Substance: DESVENLAFAXINE SUCCINATE
  13. LISINOPRIL [Concomitant]
     Active Substance: LISINOPRIL
  14. VITAMIN D3 [Concomitant]
     Active Substance: CHOLECALCIFEROL
  15. HYDROXYCHLOROQUINE SULFATE [Concomitant]
     Active Substance: HYDROXYCHLOROQUINE SULFATE
  16. IBUPROFEN [Concomitant]
     Active Substance: IBUPROFEN
  17. CETIRIZINE HYDROCHLORIDE [Concomitant]
     Active Substance: CETIRIZINE HYDROCHLORIDE
  18. FAMOTIDINE [Concomitant]
     Active Substance: FAMOTIDINE
  19. LORATADINE [Concomitant]
     Active Substance: LORATADINE
  20. ALBUTEROL\IPRATROPIUM [Concomitant]
     Active Substance: ALBUTEROL\IPRATROPIUM
  21. GABAPENTIN [Concomitant]
     Active Substance: GABAPENTIN
  22. BROMFENAC;PREDNISOLONE [Concomitant]
  23. CRANBERRY [Concomitant]
     Active Substance: CRANBERRY
  24. BENZOYL PEROXIDE\CLINDAMYCIN [Concomitant]
     Active Substance: BENZOYL PEROXIDE\CLINDAMYCIN
  25. HERBALS\TURMERIC [Concomitant]
     Active Substance: HERBALS\TURMERIC
  26. VITAMIN C [Concomitant]
     Active Substance: ASCORBIC ACID
  27. LEXAPRO [Concomitant]
     Active Substance: ESCITALOPRAM OXALATE
  28. METOPROLOL TARTRATE [Concomitant]
     Active Substance: METOPROLOL TARTRATE
  29. HYDROXYZINE HYDROCHLORIDE [Concomitant]
     Active Substance: HYDROXYZINE HYDROCHLORIDE
  30. MUCINEX [Concomitant]
     Active Substance: GUAIFENESIN
  31. WOMEN^S DAILY [Concomitant]

REACTIONS (1)
  - Gastrointestinal disorder [Unknown]
